FAERS Safety Report 6402495-0 (Version None)
Quarter: 2009Q4

REPORT INFORMATION
  Report Type: 
  Country: None (occurrence: None)
  Receive Date: 20091015
  Receipt Date: 20090831
  Transmission Date: 20100525
  Serious: Yes (Other)
  Sender: FDA-Public Use
  Company Number: GB-GENENTECH-290452

PATIENT

DRUGS (11)
  1. DACLIXIMAB [Suspect]
     Indication: GRAFT VERSUS HOST DISEASE
     Dosage: 1 MG/KG, UNK
     Route: 042
  2. MYCOPHENOLATE MOFETIL [Suspect]
     Indication: PROPHYLAXIS AGAINST TRANSPLANT REJECTION
     Route: 065
  3. SULFAMETHOXAZOLE AND TRIMETHOPRIM [Suspect]
     Indication: INFECTION PROPHYLAXIS
     Route: 065
  4. GANCICLOVIR [Suspect]
     Indication: CYTOMEGALOVIRUS INFECTION
     Route: 065
  5. RIBAVIRIN [Suspect]
     Indication: ADENOVIRUS INFECTION
     Route: 042
  6. ITRACONAZOLE [Suspect]
     Indication: INFECTION PROPHYLAXIS
     Dosage: 5 MG/KG, UNK
     Route: 065
  7. INFLIXIMAB [Suspect]
     Indication: GRAFT VERSUS HOST DISEASE
     Dosage: 10 MG/KG, UNK
     Route: 042
  8. ACYCLOVIR [Suspect]
     Indication: INFECTION PROPHYLAXIS
     Dosage: 750 MG/M2, UNK
     Route: 048
  9. PENICILLIN V [Suspect]
     Indication: INFECTION PROPHYLAXIS
     Dosage: 250 MG, UNK
     Route: 065
  10. CYCLOSPORINE [Suspect]
     Indication: PROPHYLAXIS AGAINST TRANSPLANT REJECTION
     Route: 065
  11. METHYLPREDNISOLONE [Suspect]
     Indication: PROPHYLAXIS AGAINST TRANSPLANT REJECTION
     Dosage: 2 MG/KG, UNK
     Route: 065

REACTIONS (5)
  - CYTOMEGALOVIRUS INFECTION [None]
  - EPSTEIN-BARR VIRUS INFECTION [None]
  - PANCYTOPENIA [None]
  - RESPIRATORY TRACT INFECTION FUNGAL [None]
  - VIRAL INFECTION [None]
